FAERS Safety Report 25358569 (Version 2)
Quarter: 2025Q4

REPORT INFORMATION
  Report Type: Report from Study
  Country: US (occurrence: US)
  Receive Date: 20250526
  Receipt Date: 20251204
  Transmission Date: 20260118
  Serious: Yes (Hospitalization, Other)
  Sender: TAKEDA
  Company Number: US-TAKEDA-2025TUS048553

PATIENT
  Age: 67 Year
  Sex: Female

DRUGS (4)
  1. VEDOLIZUMAB [Suspect]
     Active Substance: VEDOLIZUMAB
     Indication: Product used for unknown indication
     Dosage: 108 MILLIGRAM, Q2WEEKS
  2. VEDOLIZUMAB [Suspect]
     Active Substance: VEDOLIZUMAB
  3. VEDOLIZUMAB [Suspect]
     Active Substance: VEDOLIZUMAB
  4. VEDOLIZUMAB [Suspect]
     Active Substance: VEDOLIZUMAB

REACTIONS (12)
  - Colon cancer stage II [Unknown]
  - Large intestinal ulcer [Unknown]
  - Pneumothorax [Unknown]
  - Mass [Unknown]
  - Gastrointestinal mucosa hyperaemia [Unknown]
  - Pseudopolyp [Unknown]
  - Polyp [Unknown]
  - Product dose omission issue [Unknown]
  - Gastrointestinal motility disorder [Unknown]
  - Constipation [Unknown]
  - Pain in extremity [Unknown]
  - Back pain [Unknown]

NARRATIVE: CASE EVENT DATE: 20250509
